FAERS Safety Report 4957613-8 (Version None)
Quarter: 2006Q1

REPORT INFORMATION
  Report Type: 
  Country: None (occurrence: None)
  Receive Date: 20060324
  Receipt Date: 20060309
  Transmission Date: 20060701
  Serious: Yes (Death)
  Sender: FDA-Public Use
  Company Number: 2006S1002080

PATIENT
  Age: 81 Year
  Sex: Male

DRUGS (2)
  1. CLOZAPINE [Suspect]
     Dosage: 500 MG; QAM; ORAL; SEE IMAGE
     Route: 048
     Dates: start: 20050101, end: 20060201
  2. CLOZAPINE [Suspect]
     Dosage: 500 MG; QAM; ORAL; SEE IMAGE
     Route: 048
     Dates: start: 20050101, end: 20060201

REACTIONS (1)
  - DEATH [None]
